FAERS Safety Report 7700916-4 (Version None)
Quarter: 2011Q3

REPORT INFORMATION
  Report Type: 
  Country: None (occurrence: None)
  Receive Date: 20110822
  Receipt Date: 20110810
  Transmission Date: 20111222
  Serious: Yes (Other)
  Sender: FDA-Public Use
  Company Number: PHEH2009US11070

PATIENT
  Sex: Male

DRUGS (1)
  1. ZOMETA [Suspect]

REACTIONS (22)
  - INJURY [None]
  - ANXIETY [None]
  - LOBAR PNEUMONIA [None]
  - DISABILITY [None]
  - PAIN [None]
  - DYSPNOEA [None]
  - ANHEDONIA [None]
  - INTERVERTEBRAL DISC DEGENERATION [None]
  - CHILLS [None]
  - CHEST PAIN [None]
  - COUGH [None]
  - PYREXIA [None]
  - MULTIPLE MYELOMA [None]
  - ABDOMINAL PAIN [None]
  - CHRONIC OBSTRUCTIVE PULMONARY DISEASE [None]
  - ATELECTASIS [None]
  - DIARRHOEA [None]
  - LUNG DISORDER [None]
  - OSTEONECROSIS OF JAW [None]
  - BACK PAIN [None]
  - OSTEOPENIA [None]
  - SPINAL COMPRESSION FRACTURE [None]
